FAERS Safety Report 6114813-1 (Version None)
Quarter: 2009Q1

REPORT INFORMATION
  Report Type: 
  Country: None (occurrence: None)
  Receive Date: 20090311
  Receipt Date: 20080228
  Transmission Date: 20090719
  Serious: Yes (Other)
  Sender: FDA-Public Use
  Company Number: US200802007034

PATIENT
  Sex: Male

DRUGS (11)
  1. GEMZAR [Suspect]
     Indication: NON-SMALL CELL LUNG CANCER
  2. HYTRIN [Concomitant]
  3. FLOMAX [Concomitant]
  4. MELATONIN (MELATONIN) [Concomitant]
  5. L-CARNITINE (CARNITINE) [Concomitant]
  6. PROBIOTICA (LACTOBACILLUS REUTERI) [Concomitant]
  7. PROVIGIL [Concomitant]
  8. PROTONIX [Concomitant]
  9. GINSEND /004480901/ (GINSENG NOS) [Concomitant]
  10. LANOXIN [Concomitant]
  11. VITAMIN D [Concomitant]

REACTIONS (1)
  - NON-SMALL CELL LUNG CANCER [None]
